FAERS Safety Report 5735560-1 (Version None)
Quarter: 2008Q2

REPORT INFORMATION
  Report Type: 
  Country: None (occurrence: None)
  Receive Date: 20080512
  Receipt Date: 20080509
  Transmission Date: 20081010
  Serious: Yes (Death)
  Sender: FDA-Public Use
  Company Number: US-BOEHRINGER INGELHEIM GMBH, GERMANY-2008-BP-01200BP

PATIENT
  Age: 81 Year
  Sex: Male

DRUGS (2)
  1. MOBIC [Suspect]
     Indication: PAIN
     Dates: start: 20070330, end: 20070406
  2. MOBIC [Suspect]
     Indication: OSTEOARTHRITIS
     Dates: start: 20070406

REACTIONS (2)
  - ACUTE MYOCARDIAL INFARCTION [None]
  - CORONARY ARTERY DISEASE [None]
